FAERS Safety Report 26017761 (Version 2)
Quarter: 2025Q4

REPORT INFORMATION
  Report Type: Report from Study
  Country: CA (occurrence: CA)
  Receive Date: 20251110
  Receipt Date: 20251127
  Transmission Date: 20260118
  Serious: Yes (Hospitalization)
  Sender: ABBVIE
  Company Number: CA-ABBVIE-6531229

PATIENT
  Age: 78 Year
  Sex: Female

DRUGS (127)
  1. VENETOCLAX [Suspect]
     Active Substance: VENETOCLAX
     Indication: Acute myeloid leukaemia
     Route: 048
     Dates: start: 20241007, end: 20241007
  2. VENETOCLAX [Suspect]
     Active Substance: VENETOCLAX
     Indication: Acute myeloid leukaemia
     Route: 048
     Dates: start: 20241008, end: 20241008
  3. VENETOCLAX [Suspect]
     Active Substance: VENETOCLAX
     Indication: Acute myeloid leukaemia
     Route: 048
     Dates: start: 20241009, end: 20241031
  4. VENETOCLAX [Suspect]
     Active Substance: VENETOCLAX
     Indication: Acute myeloid leukaemia
     Route: 048
     Dates: start: 20241126, end: 20241202
  5. VENETOCLAX [Suspect]
     Active Substance: VENETOCLAX
     Indication: Acute myeloid leukaemia
     Route: 048
     Dates: start: 20250106, end: 20250112
  6. VENETOCLAX [Suspect]
     Active Substance: VENETOCLAX
     Indication: Acute myeloid leukaemia
     Route: 048
     Dates: start: 20250203, end: 20250209
  7. VENETOCLAX [Suspect]
     Active Substance: VENETOCLAX
     Indication: Acute myeloid leukaemia
     Route: 048
     Dates: start: 20250310, end: 20250316
  8. VENETOCLAX [Suspect]
     Active Substance: VENETOCLAX
     Indication: Acute myeloid leukaemia
     Route: 048
     Dates: start: 20250407, end: 20250413
  9. VENETOCLAX [Suspect]
     Active Substance: VENETOCLAX
     Indication: Acute myeloid leukaemia
     Route: 048
     Dates: start: 20250505, end: 20250511
  10. VENETOCLAX [Suspect]
     Active Substance: VENETOCLAX
     Indication: Acute myeloid leukaemia
     Route: 048
     Dates: start: 20250602, end: 20250608
  11. VENETOCLAX [Suspect]
     Active Substance: VENETOCLAX
     Indication: Acute myeloid leukaemia
     Route: 048
     Dates: start: 20250707, end: 20250713
  12. VENETOCLAX [Suspect]
     Active Substance: VENETOCLAX
     Indication: Acute myeloid leukaemia
     Route: 048
     Dates: start: 20251006, end: 20251012
  13. AZACITIDINE [Suspect]
     Active Substance: AZACITIDINE
     Indication: Acute myeloid leukaemia
     Route: 065
     Dates: start: 20241007, end: 20241011
  14. AZACITIDINE [Suspect]
     Active Substance: AZACITIDINE
     Indication: Acute myeloid leukaemia
     Route: 065
     Dates: start: 20241126, end: 20241130
  15. AZACITIDINE [Suspect]
     Active Substance: AZACITIDINE
     Indication: Acute myeloid leukaemia
     Route: 065
     Dates: start: 20250106, end: 20250109
  16. AZACITIDINE [Suspect]
     Active Substance: AZACITIDINE
     Indication: Acute myeloid leukaemia
     Route: 065
     Dates: start: 20250203, end: 20250206
  17. AZACITIDINE [Suspect]
     Active Substance: AZACITIDINE
     Indication: Acute myeloid leukaemia
     Route: 065
     Dates: start: 20250310, end: 20250314
  18. AZACITIDINE [Suspect]
     Active Substance: AZACITIDINE
     Indication: Acute myeloid leukaemia
     Route: 065
     Dates: start: 20250407, end: 20250411
  19. AZACITIDINE [Suspect]
     Active Substance: AZACITIDINE
     Indication: Acute myeloid leukaemia
     Route: 065
     Dates: start: 20250505, end: 20250509
  20. AZACITIDINE [Suspect]
     Active Substance: AZACITIDINE
     Indication: Acute myeloid leukaemia
     Route: 065
     Dates: start: 20250602, end: 20250606
  21. AZACITIDINE [Suspect]
     Active Substance: AZACITIDINE
     Indication: Acute myeloid leukaemia
     Route: 065
     Dates: start: 20250707, end: 20250710
  22. AZACITIDINE [Suspect]
     Active Substance: AZACITIDINE
     Indication: Acute myeloid leukaemia
     Route: 065
     Dates: start: 20251006, end: 20251010
  23. COVID-19 vaccine mRNA [Concomitant]
     Indication: COVID-19 prophylaxis
     Dosage: DOSE 1
  24. COVID-19 vaccine mRNA [Concomitant]
     Indication: COVID-19 prophylaxis
     Dosage: DOSE 2
  25. COVID-19 vaccine mRNA [Concomitant]
     Indication: COVID-19 prophylaxis
     Dosage: DOSE 3
  26. COMBIVENT [Concomitant]
     Active Substance: ALBUTEROL SULFATE\IPRATROPIUM BROMIDE
     Indication: Hypoxia
     Dosage: RESPIRATORY (INHALATION)
     Dates: start: 20241107, end: 20241202
  27. VITAMIN B COMPLEX [Concomitant]
     Active Substance: CYANOCOBALAMIN\DEXPANTHENOL\NIACINAMIDE\PYRIDOXINE HYDROCHLORIDE\RIBOFLAVIN 5^-PHOSPHATE SODIUM\THIA
     Indication: Routine health maintenance
     Route: 048
     Dates: end: 20241217
  28. ZINC [Concomitant]
     Active Substance: ZINC
     Indication: Routine health maintenance
     Route: 048
     Dates: end: 20241217
  29. CICLESONIDE [Concomitant]
     Active Substance: CICLESONIDE
     Indication: Product used for unknown indication
     Dosage: RESPIRATORY (INHALATION)
  30. ESOMEPRAZOLE [Concomitant]
     Active Substance: ESOMEPRAZOLE
     Indication: Antacid therapy
     Dosage: OD/PRN
     Route: 048
     Dates: end: 20241217
  31. ALLOPURINOL [Concomitant]
     Active Substance: ALLOPURINOL
     Indication: Tumour lysis syndrome
     Route: 048
     Dates: start: 20241004, end: 20241013
  32. VALACYCLOVIR [Concomitant]
     Active Substance: VALACYCLOVIR HYDROCHLORIDE
     Indication: Antiviral prophylaxis
     Route: 048
     Dates: start: 20241007, end: 20250310
  33. VALACYCLOVIR [Concomitant]
     Active Substance: VALACYCLOVIR HYDROCHLORIDE
     Indication: Antiviral prophylaxis
     Route: 048
     Dates: start: 20250404
  34. CANNABIDIOL [Concomitant]
     Active Substance: CANNABIDIOL
     Indication: Routine health maintenance
     Dosage: OIL
     Route: 048
  35. FLAX SEED [Concomitant]
     Active Substance: FLAX SEED
     Indication: Routine health maintenance
     Dosage: OIL
     Route: 048
     Dates: end: 20241217
  36. ASCORBATE CALCIUM [Concomitant]
     Indication: Routine health maintenance
     Route: 048
     Dates: end: 20250130
  37. ATORVASTATIN [Concomitant]
     Active Substance: ATORVASTATIN
     Indication: Hypercholesterolaemia
     Route: 048
     Dates: end: 20241217
  38. CALCIUM [Concomitant]
     Active Substance: CALCIUM
     Indication: Routine health maintenance
     Route: 048
     Dates: end: 20241217
  39. IRBESARTAN [Concomitant]
     Active Substance: IRBESARTAN
     Indication: Coronary artery disease
     Route: 048
     Dates: end: 20241101
  40. IVERMECTIN [Concomitant]
     Active Substance: IVERMECTIN
     Indication: Rosacea
     Dosage: CREAM TOPICAL
  41. MAGNESIUM [Concomitant]
     Active Substance: MAGNESIUM
     Indication: Routine health maintenance
     Route: 048
     Dates: end: 20241217
  42. MAGNESIUM [Concomitant]
     Active Substance: MAGNESIUM
     Indication: Routine health maintenance
     Route: 048
     Dates: start: 2024
  43. SELENIUM [Concomitant]
     Active Substance: SELENIUM
     Indication: Routine health maintenance
     Route: 048
     Dates: end: 20241217
  44. DIETARY SUPPLEMENT\HERBALS\MILK THISTLE [Concomitant]
     Active Substance: MILK THISTLE
     Indication: Routine health maintenance
     Route: 048
     Dates: end: 20241217
  45. DEXAMETHASONE [Concomitant]
     Active Substance: DEXAMETHASONE
     Indication: Prophylaxis of nausea and vomiting
     Route: 048
     Dates: start: 20241007, end: 20241007
  46. DEXAMETHASONE [Concomitant]
     Active Substance: DEXAMETHASONE
     Indication: Prophylaxis of nausea and vomiting
     Route: 048
     Dates: start: 20241126, end: 20241126
  47. DEXAMETHASONE [Concomitant]
     Active Substance: DEXAMETHASONE
     Indication: Prophylaxis of nausea and vomiting
     Route: 048
     Dates: start: 20250310, end: 20250310
  48. DEXAMETHASONE [Concomitant]
     Active Substance: DEXAMETHASONE
     Indication: Prophylaxis of nausea and vomiting
     Route: 048
     Dates: start: 20250407, end: 20250407
  49. DEXAMETHASONE [Concomitant]
     Active Substance: DEXAMETHASONE
     Indication: Prophylaxis of nausea and vomiting
     Route: 048
     Dates: start: 20250505, end: 20250505
  50. DEXAMETHASONE [Concomitant]
     Active Substance: DEXAMETHASONE
     Indication: Prophylaxis of nausea and vomiting
     Route: 048
     Dates: start: 20250602, end: 20250602
  51. DEXAMETHASONE [Concomitant]
     Active Substance: DEXAMETHASONE
     Indication: Prophylaxis of nausea and vomiting
     Route: 048
     Dates: start: 20250707, end: 20250707
  52. DEXAMETHASONE [Concomitant]
     Active Substance: DEXAMETHASONE
     Indication: Prophylaxis of nausea and vomiting
     Route: 048
     Dates: start: 20250805, end: 20250805
  53. DEXAMETHASONE [Concomitant]
     Active Substance: DEXAMETHASONE
     Indication: Prophylaxis of nausea and vomiting
     Route: 048
     Dates: start: 20250902, end: 20250902
  54. ONDANSETRON [Concomitant]
     Active Substance: ONDANSETRON
     Indication: Prophylaxis of nausea and vomiting
     Route: 048
     Dates: start: 20241007, end: 20241011
  55. ONDANSETRON [Concomitant]
     Active Substance: ONDANSETRON
     Indication: Prophylaxis of nausea and vomiting
     Route: 048
     Dates: start: 20241126, end: 20241130
  56. ONDANSETRON [Concomitant]
     Active Substance: ONDANSETRON
     Indication: Prophylaxis of nausea and vomiting
     Route: 048
     Dates: start: 20250107, end: 20250109
  57. ONDANSETRON [Concomitant]
     Active Substance: ONDANSETRON
     Indication: Prophylaxis of nausea and vomiting
     Route: 048
     Dates: start: 20250203, end: 20250206
  58. ONDANSETRON [Concomitant]
     Active Substance: ONDANSETRON
     Indication: Prophylaxis of nausea and vomiting
     Route: 048
     Dates: start: 20250310, end: 20250314
  59. ONDANSETRON [Concomitant]
     Active Substance: ONDANSETRON
     Indication: Prophylaxis of nausea and vomiting
     Route: 048
     Dates: start: 20250407, end: 20250411
  60. ONDANSETRON [Concomitant]
     Active Substance: ONDANSETRON
     Indication: Prophylaxis of nausea and vomiting
     Route: 048
     Dates: start: 20250505, end: 20250509
  61. ONDANSETRON [Concomitant]
     Active Substance: ONDANSETRON
     Indication: Prophylaxis of nausea and vomiting
     Route: 048
     Dates: start: 20250602, end: 20250606
  62. ONDANSETRON [Concomitant]
     Active Substance: ONDANSETRON
     Indication: Prophylaxis of nausea and vomiting
     Route: 048
     Dates: start: 20250707, end: 20250710
  63. ONDANSETRON [Concomitant]
     Active Substance: ONDANSETRON
     Indication: Prophylaxis of nausea and vomiting
     Route: 048
     Dates: start: 20250805, end: 20250808
  64. ONDANSETRON [Concomitant]
     Active Substance: ONDANSETRON
     Indication: Prophylaxis of nausea and vomiting
     Route: 048
     Dates: start: 20250902, end: 20250908
  65. POTASSIUM CHLORIDE [Concomitant]
     Active Substance: POTASSIUM CHLORIDE
     Indication: Hypokalaemia
     Route: 042
     Dates: start: 20241106, end: 20241106
  66. POTASSIUM CHLORIDE [Concomitant]
     Active Substance: POTASSIUM CHLORIDE
     Indication: Hypokalaemia
     Route: 042
     Dates: start: 20241108, end: 20241108
  67. POTASSIUM CHLORIDE [Concomitant]
     Active Substance: POTASSIUM CHLORIDE
     Indication: Hypokalaemia
     Route: 042
     Dates: start: 20241110, end: 20241110
  68. POTASSIUM CHLORIDE [Concomitant]
     Active Substance: POTASSIUM CHLORIDE
     Indication: Hypokalaemia
     Route: 042
     Dates: start: 20241111, end: 20241111
  69. POTASSIUM CHLORIDE [Concomitant]
     Active Substance: POTASSIUM CHLORIDE
     Indication: Hypokalaemia
     Route: 042
     Dates: start: 20241113, end: 20241113
  70. POTASSIUM CHLORIDE [Concomitant]
     Active Substance: POTASSIUM CHLORIDE
     Indication: Hypokalaemia
     Route: 042
     Dates: start: 20241116, end: 20241116
  71. POTASSIUM CHLORIDE [Concomitant]
     Active Substance: POTASSIUM CHLORIDE
     Indication: Hypokalaemia
     Route: 042
     Dates: start: 20241118, end: 20241118
  72. POTASSIUM CHLORIDE [Concomitant]
     Active Substance: POTASSIUM CHLORIDE
     Indication: Hypokalaemia
     Route: 042
     Dates: start: 20241120, end: 20241120
  73. POTASSIUM CHLORIDE [Concomitant]
     Active Substance: POTASSIUM CHLORIDE
     Indication: Hypokalaemia
     Route: 042
     Dates: start: 20241122, end: 20241122
  74. DILAUDID [Concomitant]
     Active Substance: HYDROMORPHONE HYDROCHLORIDE
     Indication: Back pain
     Dosage: 1-2 MG
     Route: 048
     Dates: start: 20241031, end: 20241107
  75. DILAUDID [Concomitant]
     Active Substance: HYDROMORPHONE HYDROCHLORIDE
     Indication: Back pain
     Dosage: 0.25 TO 0.5 MG
     Route: 048
     Dates: start: 20241104, end: 20241105
  76. TAZOCIN [Concomitant]
     Indication: Antibiotic prophylaxis
     Route: 042
     Dates: start: 20241031, end: 20241108
  77. TAZOCIN [Concomitant]
     Indication: Antibiotic prophylaxis
     Route: 042
     Dates: start: 20241113, end: 20241120
  78. TINZAPARIN [Concomitant]
     Active Substance: TINZAPARIN
     Indication: Thrombosis prophylaxis
     Dosage: 8000 UNITS
     Route: 058
     Dates: start: 20241031, end: 20241111
  79. FUSIDIC ACID [Concomitant]
     Active Substance: FUSIDIC ACID
     Indication: Rash maculo-papular
     Dosage: CREAM TOPICAL
     Dates: start: 20241101, end: 20241105
  80. LASIX [Concomitant]
     Active Substance: FUROSEMIDE
     Indication: Dyspnoea
     Route: 042
     Dates: start: 20241105, end: 20241110
  81. LASIX [Concomitant]
     Active Substance: FUROSEMIDE
     Indication: Dyspnoea
     Route: 042
     Dates: start: 20241111, end: 20241114
  82. SODIUM CHLORIDE [Concomitant]
     Active Substance: SODIUM CHLORIDE
     Indication: Productive cough
     Dosage: RESPIRATORY (INHALATION)
     Dates: start: 20241106, end: 20241106
  83. ACETAMINOPHEN AND CODEINE [Concomitant]
     Active Substance: ACETAMINOPHEN\CODEINE PHOSPHATE
     Indication: Back pain
     Dosage: 1 TO 2 TAB
     Route: 048
     Dates: start: 20241107, end: 20241112
  84. CALCIUM CHLORIDE\POTASSIUM CHLORIDE\SODIUM LACTATE [Concomitant]
     Active Substance: CALCIUM CHLORIDE\POTASSIUM CHLORIDE\SODIUM LACTATE
     Indication: Hypotension
     Route: 042
     Dates: start: 20241101, end: 20241101
  85. CALCIUM CHLORIDE\POTASSIUM CHLORIDE\SODIUM LACTATE [Concomitant]
     Active Substance: CALCIUM CHLORIDE\POTASSIUM CHLORIDE\SODIUM LACTATE
     Indication: Hypotension
     Dosage: OVER 2 HOURS
     Route: 042
     Dates: start: 20241122, end: 20241122
  86. SENNA-S [Concomitant]
     Active Substance: DOCUSATE SODIUM\SENNOSIDES
     Indication: Constipation
     Dosage: 2 TABS
     Route: 048
     Dates: start: 20241102, end: 20241217
  87. VITAMIN D [Concomitant]
     Active Substance: VITAMIN D NOS
     Indication: Routine health maintenance
     Dosage: 1 TAB
     Route: 048
     Dates: start: 20241103
  88. VITAMIN B12 [Concomitant]
     Active Substance: CYANOCOBALAMIN
     Indication: Bone marrow disorder
     Route: 058
     Dates: start: 20241102, end: 20241102
  89. FOLIC ACID [Concomitant]
     Active Substance: FOLIC ACID
     Indication: Bone marrow disorder
     Route: 048
     Dates: start: 20241102
  90. VANCOMYCIN [Concomitant]
     Active Substance: VANCOMYCIN
     Indication: Antibiotic prophylaxis
     Route: 042
     Dates: start: 20241104, end: 20241104
  91. VANCOMYCIN [Concomitant]
     Active Substance: VANCOMYCIN
     Indication: Antibiotic prophylaxis
     Route: 042
     Dates: start: 20241105, end: 20241108
  92. SODIUM PHOSPHATE [Concomitant]
     Active Substance: SODIUM PHOSPHATE
     Indication: Hypophosphataemia
     Route: 042
     Dates: start: 20241104, end: 20241104
  93. CLINDAMYCIN [Concomitant]
     Active Substance: CLINDAMYCIN
     Indication: Pneumocystis jirovecii pneumonia
     Route: 042
     Dates: start: 20241108, end: 20241113
  94. HEPARIN [Concomitant]
     Active Substance: HEPARIN SODIUM
     Indication: Pulmonary embolism
     Dosage: 18-27 ML/HR
     Route: 042
     Dates: start: 20241111, end: 20241112
  95. ARGATROBAN [Concomitant]
     Active Substance: ARGATROBAN
     Indication: Heparin-induced thrombocytopenia
     Dosage: 9.6-12 ML/HR
     Route: 042
     Dates: start: 20241113, end: 20241122
  96. AZITHROMYCIN [Concomitant]
     Active Substance: AZITHROMYCIN
     Indication: Respiratory disorder prophylaxis
     Route: 048
     Dates: start: 20241116, end: 20241116
  97. AZITHROMYCIN [Concomitant]
     Active Substance: AZITHROMYCIN
     Indication: Respiratory disorder prophylaxis
     Route: 048
     Dates: start: 20241117, end: 20241120
  98. FONDAPARINUX [Concomitant]
     Active Substance: FONDAPARINUX
     Indication: Heparin-induced thrombocytopenia
     Dosage: 7.5 MG
     Route: 058
     Dates: start: 20241122, end: 20241128
  99. BENADRYL [Concomitant]
     Active Substance: DIPHENHYDRAMINE HYDROCHLORIDE
     Indication: Pruritus
     Route: 048
     Dates: start: 20250205, end: 20250205
  100. PREDNISONE [Concomitant]
     Active Substance: PREDNISONE
     Indication: Pruritus
     Route: 048
     Dates: start: 20250312, end: 20250318
  101. PREDNISONE [Concomitant]
     Active Substance: PREDNISONE
     Indication: Pruritus
     Route: 048
     Dates: start: 20250408, end: 20250411
  102. PREDNISONE [Concomitant]
     Active Substance: PREDNISONE
     Indication: Pruritus
     Route: 048
     Dates: start: 20250506, end: 20250509
  103. PREDNISONE [Concomitant]
     Active Substance: PREDNISONE
     Indication: Pruritus
     Route: 048
     Dates: start: 20250603, end: 20250606
  104. PREDNISONE [Concomitant]
     Active Substance: PREDNISONE
     Indication: Pruritus
     Route: 048
     Dates: start: 20250708, end: 20250710
  105. PREDNISONE [Concomitant]
     Active Substance: PREDNISONE
     Indication: Pruritus
     Route: 048
     Dates: start: 20250806, end: 20250808
  106. PREDNISONE [Concomitant]
     Active Substance: PREDNISONE
     Indication: Pruritus
     Route: 048
     Dates: start: 20250903, end: 20250908
  107. VITAMIN C [Concomitant]
     Active Substance: ASCORBIC ACID
     Indication: Routine health maintenance
     Route: 048
     Dates: start: 2025
  108. AMOXICILLIN\CLAVULANIC ACID [Concomitant]
     Active Substance: AMOXICILLIN\CLAVULANIC ACID
     Indication: Urinary tract infection
     Dosage: 875/125 MG
     Route: 050
     Dates: start: 20250119, end: 20250121
  109. CEPHALEXIN [Concomitant]
     Active Substance: CEPHALEXIN
     Indication: Rash maculo-papular
     Route: 048
     Dates: start: 20241027, end: 20241031
  110. FLUCONAZOLE [Concomitant]
     Active Substance: FLUCONAZOLE
     Indication: Antifungal treatment
     Route: 042
     Dates: start: 20241108, end: 20241109
  111. FLUCONAZOLE [Concomitant]
     Active Substance: FLUCONAZOLE
     Indication: Antifungal treatment
     Route: 042
     Dates: start: 20241110, end: 20241114
  112. FUROSEMIDE [Concomitant]
     Active Substance: FUROSEMIDE
     Indication: Oxygen saturation decreased
     Route: 048
     Dates: start: 20241111, end: 20241111
  113. FUROSEMIDE [Concomitant]
     Active Substance: FUROSEMIDE
     Indication: Oxygen saturation decreased
     Route: 048
     Dates: start: 20241115, end: 20241122
  114. ACETAMINOPHEN [Concomitant]
     Active Substance: ACETAMINOPHEN
     Indication: Pain
     Dosage: 650-975 MG
     Route: 048
     Dates: start: 20241122, end: 20241202
  115. TORADOL [Concomitant]
     Active Substance: KETOROLAC TROMETHAMINE
     Indication: Musculoskeletal chest pain
     Route: 042
     Dates: start: 20241122, end: 20241123
  116. FAMOTIDINE [Concomitant]
     Active Substance: FAMOTIDINE
     Indication: Antacid therapy
     Route: 048
     Dates: start: 20241126, end: 20241217
  117. APIXABAN [Concomitant]
     Active Substance: APIXABAN
     Indication: Thrombosis prophylaxis
     Route: 048
     Dates: start: 20241129, end: 20250403
  118. APIXABAN [Concomitant]
     Active Substance: APIXABAN
     Indication: Thrombosis prophylaxis
     Route: 048
     Dates: start: 20250404
  119. PEGFILGRASTIM [Concomitant]
     Active Substance: PEGFILGRASTIM
     Indication: Full blood count abnormal
     Route: 058
     Dates: start: 20241201, end: 20241201
  120. PEGFILGRASTIM [Concomitant]
     Active Substance: PEGFILGRASTIM
     Indication: Full blood count abnormal
     Route: 058
     Dates: start: 20250111, end: 20250111
  121. PEGFILGRASTIM [Concomitant]
     Active Substance: PEGFILGRASTIM
     Indication: Full blood count abnormal
     Route: 058
     Dates: start: 20250208, end: 20250208
  122. PEGFILGRASTIM [Concomitant]
     Active Substance: PEGFILGRASTIM
     Indication: Full blood count abnormal
     Route: 058
     Dates: start: 20250315, end: 20250315
  123. PEGFILGRASTIM [Concomitant]
     Active Substance: PEGFILGRASTIM
     Indication: Full blood count abnormal
     Route: 058
     Dates: start: 20250712, end: 20250712
  124. PEGFILGRASTIM [Concomitant]
     Active Substance: PEGFILGRASTIM
     Indication: Full blood count abnormal
     Route: 058
     Dates: start: 20250810, end: 20250810
  125. PEGFILGRASTIM [Concomitant]
     Active Substance: PEGFILGRASTIM
     Indication: Full blood count abnormal
     Route: 058
     Dates: start: 20250909, end: 20250909
  126. HERBALS [Concomitant]
     Active Substance: HERBALS
     Indication: Routine health maintenance
     Route: 048
     Dates: start: 2024
  127. REISHI [Concomitant]
     Active Substance: REISHI
     Indication: Routine health maintenance
     Route: 048
     Dates: start: 2025

REACTIONS (1)
  - Pleural effusion [Recovered/Resolved]

NARRATIVE: CASE EVENT DATE: 20241104
